FAERS Safety Report 14406502 (Version 2)
Quarter: 2018Q1

REPORT INFORMATION
  Report Type: Spontaneous
  Country: US (occurrence: US)
  Receive Date: 20180118
  Receipt Date: 20180222
  Transmission Date: 20180509
  Serious: Yes (Other)
  Sender: FDA-Public Use
  Company Number: US-JNJFOC-20180112529

PATIENT
  Sex: Female

DRUGS (7)
  1. TOPAMAX [Suspect]
     Active Substance: TOPIRAMATE
     Indication: MYOCLONIC EPILEPSY
     Route: 048
     Dates: start: 1999
  2. TOPIRAMATE. [Suspect]
     Active Substance: TOPIRAMATE
     Indication: MYOCLONIC EPILEPSY
     Route: 048
  3. TOPIRAMATE. [Suspect]
     Active Substance: TOPIRAMATE
     Indication: HEADACHE
     Route: 048
  4. TOPAMAX [Suspect]
     Active Substance: TOPIRAMATE
     Indication: MYOCLONIC EPILEPSY
     Dosage: 100 MG 2 TIMES A DAY
     Route: 048
  5. TOPAMAX [Suspect]
     Active Substance: TOPIRAMATE
     Indication: MYOCLONIC EPILEPSY
     Route: 048
  6. TOPAMAX [Suspect]
     Active Substance: TOPIRAMATE
     Indication: HEADACHE
     Dosage: 100 MG 2 TIMES A DAY
     Route: 048
  7. LYMERIX [Suspect]
     Active Substance: LIPOPROTEIN OUTER SURFACE A BORRELIA BURGDORFERI ANTIGEN\LYME DISEASE VACCINE RECOMBINANT OSPA
     Indication: PRODUCT USED FOR UNKNOWN INDICATION
     Route: 065

REACTIONS (5)
  - Lyme disease [Unknown]
  - Fall [Unknown]
  - Therapeutic response changed [Unknown]
  - Visual impairment [Not Recovered/Not Resolved]
  - Product label issue [Unknown]
